FAERS Safety Report 19441918 (Version 2)
Quarter: 2021Q3

REPORT INFORMATION
  Report Type: Spontaneous
  Country: GB (occurrence: GB)
  Receive Date: 20210621
  Receipt Date: 20210715
  Transmission Date: 20211014
  Serious: Yes (Other)
  Sender: FDA-Public Use
  Company Number: GB-TEVA-2021-GB-1923756

PATIENT
  Age: 72 Year
  Sex: Male
  Weight: 55 kg

DRUGS (10)
  1. IBUPROFEN. [Concomitant]
     Active Substance: IBUPROFEN
     Indication: ARTHRALGIA
     Dosage: AS REQUIRED (PRN), ONCE OR TWICE A DAY, AS REQUIRED.
  2. ASTRAZENECA COVID?19 VACCINE [Concomitant]
     Active Substance: AZD-1222
     Indication: COVID-19 IMMUNISATION
     Dosage: DOSE 2, BATCH PW40009. NO ADVERSE REACTION.
     Dates: start: 20210410, end: 20210410
  3. NAPROXEN. [Suspect]
     Active Substance: NAPROXEN
     Indication: JOINT STIFFNESS
  4. ASPIRIN. [Concomitant]
     Active Substance: ASPIRIN
     Dosage: 600 MILLIGRAM DAILY; IN THE MORNING (MANE). INITIALLY ONCE A DAY, INCREASING TO THREE TIMES A DAY.
     Dates: start: 2020
  5. NAPROXEN. [Suspect]
     Active Substance: NAPROXEN
     Indication: ARTHRALGIA
     Dosage: 250MG
     Route: 048
     Dates: start: 20210219, end: 20210607
  6. TRIAMCINOLONE [Concomitant]
     Active Substance: TRIAMCINOLONE
     Dosage: 80MG
     Route: 030
     Dates: start: 20210219
  7. NAPROXEN. [Suspect]
     Active Substance: NAPROXEN
     Indication: ARTHRALGIA
  8. NAPROXEN. [Suspect]
     Active Substance: NAPROXEN
     Indication: JOINT SWELLING
  9. ASTRAZENECA COVID?19 VACCINE [Suspect]
     Active Substance: AZD-1222
     Indication: COVID-19 IMMUNISATION
     Dosage: DOSE 1
     Route: 065
     Dates: start: 20210123, end: 20210123
  10. TAMSULOSIN [Concomitant]
     Active Substance: TAMSULOSIN
     Indication: BENIGN PROSTATIC HYPERPLASIA

REACTIONS (14)
  - Chills [Recovered/Resolved with Sequelae]
  - Feeling abnormal [Recovering/Resolving]
  - Fatigue [Not Recovered/Not Resolved]
  - Joint swelling [Unknown]
  - Depressed mood [Recovering/Resolving]
  - Pain [Not Recovered/Not Resolved]
  - Influenza like illness [Recovered/Resolved]
  - Arthritis [Unknown]
  - Pyrexia [Recovered/Resolved with Sequelae]
  - Asthenia [Recovering/Resolving]
  - Respiratory symptom [Unknown]
  - Hyperaesthesia [Not Recovered/Not Resolved]
  - Hypersomnia [Unknown]
  - Joint stiffness [Unknown]

NARRATIVE: CASE EVENT DATE: 20210123
